FAERS Safety Report 16400576 (Version 2)
Quarter: 2019Q3

REPORT INFORMATION
  Report Type: Spontaneous
  Country: US (occurrence: US)
  Receive Date: 20190606
  Receipt Date: 20190724
  Transmission Date: 20191004
  Serious: Yes (Hospitalization)
  Sender: FDA-Public Use
  Company Number: US-JNJFOC-20190539418

PATIENT
  Sex: Female

DRUGS (3)
  1. ORTHO TRI CYCLEN [Suspect]
     Active Substance: ETHINYL ESTRADIOL\NORGESTIMATE
     Indication: HORMONE THERAPY
  2. ORTHO TRI CYCLEN [Suspect]
     Active Substance: ETHINYL ESTRADIOL\NORGESTIMATE
     Indication: OVARIAN CYST
     Route: 048
  3. NORGESTIMATE/ETHINYL ESTRADIOL TABLET [Suspect]
     Active Substance: ETHINYL ESTRADIOL\NORGESTIMATE
     Indication: PRODUCT USED FOR UNKNOWN INDICATION
     Route: 048

REACTIONS (5)
  - Agitation [Not Recovered/Not Resolved]
  - Hospitalisation [Unknown]
  - Drug ineffective [Recovered/Resolved]
  - Product use in unapproved indication [Unknown]
  - Off label use [Unknown]
